FAERS Safety Report 19567194 (Version 1)
Quarter: 2021Q3

REPORT INFORMATION
  Report Type: Spontaneous
  Country: CN (occurrence: CN)
  Receive Date: 20210714
  Receipt Date: 20210714
  Transmission Date: 20211014
  Serious: Yes (Other)
  Sender: FDA-Public Use
  Company Number: CN-SA-2021SA230495

PATIENT
  Age: 73 Year
  Sex: Male

DRUGS (4)
  1. GIMERACIL;OTERACIL;TEGAFUR [Suspect]
     Active Substance: GIMERACIL\OTERACIL\TEGAFUR
     Indication: ADENOCARCINOMA GASTRIC
     Dosage: UNK UNK, Q3W
     Route: 042
  2. TRASTUZUMAB. [Suspect]
     Active Substance: TRASTUZUMAB
     Indication: ADENOCARCINOMA GASTRIC
     Route: 042
  3. OXALIPLATIN. [Suspect]
     Active Substance: OXALIPLATIN
     Indication: ADENOCARCINOMA GASTRIC
     Dosage: UNK UNK, Q3W
     Route: 042
  4. GEMCITABINE HYDROCHLORIDE. [Suspect]
     Active Substance: GEMCITABINE HYDROCHLORIDE
     Indication: BLADDER CANCER
     Dosage: UNK UNK, QW

REACTIONS (5)
  - Drug intolerance [Unknown]
  - Nausea [Unknown]
  - Myelosuppression [Unknown]
  - Toxicity to various agents [Unknown]
  - Vomiting [Unknown]
